FAERS Safety Report 10297792 (Version 2)
Quarter: 2014Q3

REPORT INFORMATION
  Report Type: Spontaneous
  Country: DE (occurrence: DE)
  Receive Date: 20140711
  Receipt Date: 20140923
  Transmission Date: 20150326
  Serious: Yes (Hospitalization)
  Sender: FDA-Public Use
  Company Number: DE-SA-2014SA089797

PATIENT
  Age: 49 Year
  Sex: Male

DRUGS (6)
  1. L-THYROXIN [Concomitant]
     Active Substance: LEVOTHYROXINE SODIUM
     Dosage: 1-0-0; IN THE MORNING
  2. CARBAMAZEPINE. [Concomitant]
     Active Substance: CARBAMAZEPINE
     Dosage: 1-0-1; MORNING AND EVENING
  3. FABRAZYME [Suspect]
     Active Substance: AGALSIDASE BETA
     Indication: FABRY^S DISEASE
     Route: 041
     Dates: start: 20100702
  4. ASPIRIN. [Concomitant]
     Active Substance: ASPIRIN
     Dosage: 1-0-0; IN THE MORNING
  5. SIMVASTATIN. [Concomitant]
     Active Substance: SIMVASTATIN
     Dosage: 0-0-1; IN THE EVENING
  6. PANTOPRAZOLE [Concomitant]
     Active Substance: PANTOPRAZOLE SODIUM
     Dosage: 1-0-0; IN THE MORNING

REACTIONS (2)
  - Convulsion [Recovered/Resolved]
  - Thalamic infarction [Recovered/Resolved]

NARRATIVE: CASE EVENT DATE: 2014
